FAERS Safety Report 23740745 (Version 5)
Quarter: 2024Q4

REPORT INFORMATION
  Report Type: Report from Study
  Country: US (occurrence: US)
  Receive Date: 20240415
  Receipt Date: 20241121
  Transmission Date: 20250115
  Serious: Yes (Hospitalization, Other)
  Sender: BOEHRINGER INGELHEIM
  Company Number: US-BoehringerIngelheim-2023-BI-258100

PATIENT
  Age: 80 Year
  Sex: Male

DRUGS (3)
  1. OFEV [Suspect]
     Active Substance: NINTEDANIB
     Indication: Idiopathic pulmonary fibrosis
     Dosage: 208540A,208542A,208573,302414, 304730
     Route: 048
     Dates: start: 20230717
  2. OFEV [Suspect]
     Active Substance: NINTEDANIB
     Route: 048
  3. AMLODIPINE [Concomitant]
     Active Substance: AMLODIPINE BESYLATE
     Indication: Product used for unknown indication

REACTIONS (19)
  - Pulmonary haemorrhage [Unknown]
  - Dementia [Unknown]
  - Circulatory collapse [Unknown]
  - Haemoptysis [Unknown]
  - Oxygen saturation decreased [Unknown]
  - Nasopharyngitis [Unknown]
  - Multiple allergies [Unknown]
  - Weight decreased [Unknown]
  - Diarrhoea [Recovered/Resolved]
  - Dysgeusia [Unknown]
  - Hypersomnia [Unknown]
  - Pain [Unknown]
  - Decreased appetite [Unknown]
  - Diarrhoea [Not Recovered/Not Resolved]
  - Hypertension [Unknown]
  - Nausea [Unknown]
  - Amnesia [Unknown]
  - Cardiac disorder [Unknown]
  - Drug intolerance [Unknown]

NARRATIVE: CASE EVENT DATE: 20240301
